FAERS Safety Report 18042330 (Version 1)
Quarter: 2020Q3

REPORT INFORMATION
  Report Type: Spontaneous
  Country: CN (occurrence: CN)
  Receive Date: 20200720
  Receipt Date: 20200720
  Transmission Date: 20201103
  Serious: Yes (Other)
  Sender: FDA-Public Use
  Company Number: CN-GLAXOSMITHKLINE-CN2020APC124903

PATIENT
  Age: 42 Year
  Sex: Female
  Weight: 55 kg

DRUGS (2)
  1. PULMICORT RESPULES [Suspect]
     Active Substance: BUDESONIDE
     Indication: PRODUCTIVE COUGH
     Dosage: UNK, QD
     Route: 055
     Dates: start: 20200611, end: 20200611
  2. VENTOLIN [Suspect]
     Active Substance: ALBUTEROL SULFATE
     Indication: PRODUCTIVE COUGH
     Dosage: 5 MG, QD
     Route: 055
     Dates: start: 20200611, end: 20200611

REACTIONS (8)
  - Palpitations [Recovered/Resolved]
  - Sinus tachycardia [Unknown]
  - Electrocardiogram ST segment depression [Unknown]
  - Supraventricular extrasystoles [Unknown]
  - Heart rate increased [Recovered/Resolved]
  - Electrocardiogram U wave present [Unknown]
  - Coronary artery disease [Unknown]
  - Cardiac disorder [Unknown]

NARRATIVE: CASE EVENT DATE: 20200611
